FAERS Safety Report 22175566 (Version 1)
Quarter: 2023Q2

REPORT INFORMATION
  Report Type: Spontaneous
  Country: US (occurrence: None)
  Receive Date: 20230404
  Receipt Date: 20230404
  Transmission Date: 20230721
  Serious: Yes (Hospitalization)
  Sender: FDA-Public Use
  Company Number: None

PATIENT
  Sex: Female

DRUGS (1)
  1. ARANESP [Suspect]
     Active Substance: DARBEPOETIN ALFA
     Indication: Anaemia of chronic disease
     Dosage: FREQUENCY : MONTHLY;?
     Route: 058
     Dates: start: 202302

REACTIONS (3)
  - Dehydration [None]
  - Diarrhoea [None]
  - Urinary tract infection [None]
